FAERS Safety Report 24449823 (Version 1)
Quarter: 2024Q4

REPORT INFORMATION
  Report Type: Spontaneous
  Country: US (occurrence: US)
  Receive Date: 20241017
  Receipt Date: 20241017
  Transmission Date: 20250114
  Serious: Yes (Other)
  Sender: PFIZER
  Company Number: US-PFIZER INC-PV202400133823

PATIENT
  Age: 60 Year
  Sex: Female

DRUGS (1)
  1. XELJANZ XR [Suspect]
     Active Substance: TOFACITINIB CITRATE
     Indication: Psoriatic arthropathy
     Dosage: 11MG TABLET DAILY
     Route: 048
     Dates: start: 202408

REACTIONS (2)
  - Neuropathy peripheral [Unknown]
  - Joint dislocation [Unknown]

NARRATIVE: CASE EVENT DATE: 20240901
